FAERS Safety Report 9959182 (Version 1)
Quarter: 2014Q1

REPORT INFORMATION
  Report Type: Spontaneous
  Country: US (occurrence: None)
  Receive Date: 20140228
  Receipt Date: 20140228
  Transmission Date: 20141002
  Serious: Yes (Other)
  Sender: FDA-Public Use
  Company Number: None

PATIENT
  Age: 39 Year
  Sex: Female
  Weight: 99.79 kg

DRUGS (1)
  1. D AMPHETAMINE SALT COM XR [Suspect]
     Indication: ATTENTION DEFICIT/HYPERACTIVITY DISORDER
     Dosage: 2/DAY
     Route: 048
     Dates: start: 20140126, end: 20140226

REACTIONS (8)
  - Product substitution issue [None]
  - Attention deficit/hyperactivity disorder [None]
  - Condition aggravated [None]
  - Disturbance in attention [None]
  - Vitreous floaters [None]
  - Anger [None]
  - Mood swings [None]
  - Sleep disorder [None]
